FAERS Safety Report 6118808-3 (Version None)
Quarter: 2009Q1

REPORT INFORMATION
  Report Type: 
  Country: None (occurrence: None)
  Receive Date: 20090316
  Receipt Date: 20090305
  Transmission Date: 20090719
  Serious: Yes (Hospitalization, Other)
  Sender: FDA-Public Use
  Company Number: PHHY2009BR08135

PATIENT
  Sex: Female

DRUGS (4)
  1. FORASEQ [Suspect]
     Dosage: 1 DF, BID
     Dates: start: 20050101
  2. LIPITOR [Concomitant]
     Dosage: 0.5 DF NOCTE
     Dates: start: 20090101
  3. CRESTOR [Concomitant]
     Indication: BLOOD CHOLESTEROL
     Dosage: 1 DF PERDAY
  4. SYNTHROID [Concomitant]
     Indication: HYPOTHYROIDISM
     Dosage: 1 DF, ONCE/SINGLE

REACTIONS (2)
  - BREAST MASS [None]
  - BREAST OPERATION [None]
